FAERS Safety Report 20855913 (Version 1)
Quarter: 2022Q2

REPORT INFORMATION
  Report Type: Spontaneous
  Country: US (occurrence: None)
  Receive Date: 20220520
  Receipt Date: 20220520
  Transmission Date: 20220721
  Serious: Yes (Other)
  Sender: FDA-Public Use
  Company Number: None

PATIENT
  Age: 17 Year
  Sex: Male
  Weight: 43.2 kg

DRUGS (1)
  1. BEBTELOVIMAB [Suspect]
     Active Substance: BEBTELOVIMAB
     Indication: COVID-19

REACTIONS (5)
  - Chest discomfort [None]
  - Vomiting [None]
  - Flushing [None]
  - Drug hypersensitivity [None]
  - Heart rate increased [None]

NARRATIVE: CASE EVENT DATE: 20220518
